FAERS Safety Report 7009820-0 (Version None)
Quarter: 2010Q3

REPORT INFORMATION
  Report Type: 
  Country: None (occurrence: None)
  Receive Date: 20100923
  Receipt Date: 20100920
  Transmission Date: 20110219
  Serious: Yes (Hospitalization, Other)
  Sender: FDA-Public Use
  Company Number: DE-EISAI INC.-E2090-01297-SPO-DE

PATIENT
  Sex: Female

DRUGS (9)
  1. ZONEGRAN [Suspect]
     Indication: EPILEPSY
     Route: 048
     Dates: start: 20050101, end: 20100903
  2. ZONEGRAN [Suspect]
     Route: 048
     Dates: start: 20100903
  3. LISKANTIN [Concomitant]
     Indication: EPILEPSY
     Route: 048
     Dates: start: 20050101
  4. CONTRAZEPTION [Concomitant]
  5. MAGNESIUM [Concomitant]
     Route: 048
  6. DECORTIN H [Concomitant]
     Route: 048
     Dates: start: 20100916, end: 20100917
  7. DECORTIN H [Concomitant]
     Route: 048
     Dates: start: 20100918, end: 20100919
  8. DECORTIN H [Concomitant]
     Route: 048
     Dates: start: 20100920, end: 20100921
  9. DECORTIN H [Concomitant]
     Route: 048
     Dates: start: 20100922, end: 20100922

REACTIONS (1)
  - VISION BLURRED [None]
